FAERS Safety Report 22122044 (Version 1)
Quarter: 2023Q1

REPORT INFORMATION
  Report Type: Spontaneous
  Country: RU (occurrence: None)
  Receive Date: 20230321
  Receipt Date: 20230321
  Transmission Date: 20230417
  Serious: Yes (Other)
  Sender: FDA-Public Use
  Company Number: 2023A062642

PATIENT
  Age: 66 Year
  Sex: Female
  Weight: 60 kg

DRUGS (6)
  1. SYMBICORT [Suspect]
     Active Substance: BUDESONIDE\FORMOTEROL FUMARATE DIHYDRATE
     Indication: Chronic obstructive pulmonary disease
     Route: 055
     Dates: start: 20221123
  2. AMBROXOL [Concomitant]
     Active Substance: AMBROXOL
     Indication: Bronchitis
     Dates: start: 20221116, end: 20221125
  3. CEFTRIAXONE [Concomitant]
     Active Substance: CEFTRIAXONE
     Indication: Chronic obstructive pulmonary disease
     Dates: start: 20221116, end: 20221125
  4. UMIFENOVIR [Concomitant]
     Active Substance: UMIFENOVIR
     Indication: Viral infection
     Dates: start: 20221116, end: 20221125
  5. INSPIRAX [Concomitant]
     Indication: Chronic obstructive pulmonary disease
     Dosage: 20 DROPS 2 TIMES A DAY
     Dates: start: 20221116, end: 20221125
  6. BUDESONIDE [Concomitant]
     Active Substance: BUDESONIDE
     Indication: Chronic obstructive pulmonary disease
     Dates: start: 20221116, end: 20221125

REACTIONS (1)
  - Asphyxia [Unknown]
